FAERS Safety Report 6640025-9 (Version None)
Quarter: 2010Q1

REPORT INFORMATION
  Report Type: 
  Country: None (occurrence: None)
  Receive Date: 20100318
  Receipt Date: 20100309
  Transmission Date: 20100710
  Serious: Yes (Other)
  Sender: FDA-Public Use
  Company Number: DE-ASTRAZENECA-2010SE08772

PATIENT
  Age: 26414 Day
  Sex: Male
  Weight: 80 kg

DRUGS (8)
  1. CRESTOR [Suspect]
     Indication: BLOOD CHOLESTEROL INCREASED
     Route: 048
     Dates: start: 20091222
  2. CRESTOR [Suspect]
     Indication: LOW DENSITY LIPOPROTEIN INCREASED
     Route: 048
     Dates: start: 20091222
  3. RASILEZ [Concomitant]
     Indication: HYPERTENSION
     Dosage: 1 DF DAILY 300
     Route: 048
  4. RAMIPRIL [Concomitant]
     Indication: HYPERTENSION
     Route: 048
  5. CARMEN [Concomitant]
     Indication: HYPERTENSION
     Route: 048
  6. CONCOR [Concomitant]
     Indication: HYPERTENSION
     Dosage: 1/2 DF 5
     Route: 048
     Dates: start: 20080101
  7. ASPIRIN [Concomitant]
     Dosage: 1 DF 100
     Route: 048
  8. L-THYROXIN [Concomitant]
     Dosage: 1 DF 100
     Route: 048

REACTIONS (4)
  - BLOOD CREATINE PHOSPHOKINASE INCREASED [None]
  - BLOOD CREATININE INCREASED [None]
  - BLOOD UREA INCREASED [None]
  - BLOOD URIC ACID INCREASED [None]
